FAERS Safety Report 22609974 (Version 1)
Quarter: 2023Q2

REPORT INFORMATION
  Report Type: Spontaneous
  Country: CA (occurrence: CA)
  Receive Date: 20230616
  Receipt Date: 20230616
  Transmission Date: 20230722
  Serious: Yes (Other)
  Sender: FDA-Public Use
  Company Number: CA-BRACCO-2023CA00698

PATIENT
  Age: 78 Year
  Sex: Female

DRUGS (1)
  1. ISOVUE 370 [Suspect]
     Active Substance: IOPAMIDOL
     Indication: Computerised tomogram abdomen
     Dosage: 120 ML, SINGLE
     Route: 042
     Dates: start: 20230216, end: 20230216

REACTIONS (3)
  - Sneezing [Recovered/Resolved]
  - Blood glucose decreased [Recovered/Resolved]
  - Oxygen therapy [Recovered/Resolved]

NARRATIVE: CASE EVENT DATE: 20230216
